FAERS Safety Report 6315251-9 (Version None)
Quarter: 2009Q3

REPORT INFORMATION
  Report Type: 
  Country: None (occurrence: None)
  Receive Date: 20090819
  Receipt Date: 20090811
  Transmission Date: 20100115
  Serious: Yes (Other)
  Sender: FDA-Public Use
  Company Number: PHHY2009CA34012

PATIENT
  Sex: Female

DRUGS (3)
  1. SANDOSTATIN LAR [Suspect]
     Indication: ACROMEGALY
     Dosage: 20 MG, QMO
     Route: 058
     Dates: start: 20090201, end: 20090810
  2. BROMOCRIPTINE [Concomitant]
     Dosage: 2.5 MG, BID
  3. ALCOHOL [Concomitant]

REACTIONS (1)
  - FEELING ABNORMAL [None]
